FAERS Safety Report 5833620-8 (Version None)
Quarter: 2008Q3

REPORT INFORMATION
  Report Type: 
  Country: None (occurrence: None)
  Receive Date: 20080722
  Receipt Date: 20080226
  Transmission Date: 20090109
  Serious: Yes (Hospitalization)
  Sender: FDA-Public Use
  Company Number: 2008BI005289

PATIENT
  Age: 28 Year
  Sex: Female

DRUGS (3)
  1. AVONEX [Suspect]
     Indication: MULTIPLE SCLEROSIS
     Dosage: 30 UG ; QW ; IM
     Route: 030
     Dates: start: 20060403, end: 20060501
  2. AVONEX [Suspect]
     Indication: MULTIPLE SCLEROSIS
     Dosage: 30 UG ; QW ; IM
     Route: 030
     Dates: start: 20070501, end: 20071217
  3. AVONEX [Suspect]
     Indication: MULTIPLE SCLEROSIS
     Dosage: 30 UG ; QW ; IM
     Route: 030
     Dates: start: 20080116, end: 20080225

REACTIONS (1)
  - CYSTITIS [None]
